FAERS Safety Report 5985118-4 (Version None)
Quarter: 2008Q4

REPORT INFORMATION
  Report Type: 
  Country: None (occurrence: None)
  Receive Date: 20081208
  Receipt Date: 20080514
  Transmission Date: 20090506
  Serious: Yes (Other)
  Sender: FDA-Public Use
  Company Number: US-AMGEN-QUU279539

PATIENT
  Sex: Female

DRUGS (2)
  1. ENBREL [Suspect]
     Indication: RHEUMATOID ARTHRITIS
     Route: 058
     Dates: start: 20070601, end: 20080513
  2. METHOTREXATE [Concomitant]
     Route: 048

REACTIONS (6)
  - ANXIETY [None]
  - HYPERTENSION [None]
  - LYMPHADENOPATHY [None]
  - LYMPHOMA [None]
  - PNEUMONIA [None]
  - STRESS [None]
